FAERS Safety Report 8880493 (Version 1)
Quarter: 2012Q4

REPORT INFORMATION
  Report Type: 
  Country: JP (occurrence: JP)
  Receive Date: 20121101
  Receipt Date: 20121101
  Transmission Date: 20130627
  Serious: Yes (Other)
  Sender: FDA-Public Use
  Company Number: JP-ACTELION-A-CH2012-73555

PATIENT
  Age: 5 Month
  Sex: Male
  Weight: 5.2 kg

DRUGS (6)
  1. TRACLEER [Suspect]
     Indication: PULMONARY ARTERIAL HYPERTENSION
     Dosage: UNK mg, UNK
     Route: 048
  2. EPOPROSTENOL [Concomitant]
     Route: 041
  3. OXYGEN [Concomitant]
  4. NITRIC OXIDE [Concomitant]
  5. GAMMA GLOBULIN [Concomitant]
  6. MILRINONE [Concomitant]

REACTIONS (1)
  - Tracheal stenosis [Unknown]
